FAERS Safety Report 5142281-5 (Version None)
Quarter: 2006Q4

REPORT INFORMATION
  Report Type: 
  Country: None (occurrence: None)
  Receive Date: 20061030
  Receipt Date: 20061030
  Transmission Date: 20070319
  Serious: No
  Sender: FDA-Public Use
  Company Number: None

PATIENT

DRUGS (1)
  1. METHOTREXATE SODIUM [Suspect]
     Dosage: TABLET

REACTIONS (6)
  - INCORRECT DOSE ADMINISTERED [None]
  - MEDICATION ERROR [None]
  - NAUSEA [None]
  - PANCYTOPENIA [None]
  - RESPIRATORY DISORDER [None]
  - VOMITING [None]
